FAERS Safety Report 6899101-8 (Version None)
Quarter: 2010Q3

REPORT INFORMATION
  Report Type: 
  Country: None (occurrence: None)
  Receive Date: 20100802
  Receipt Date: 20080110
  Transmission Date: 20110219
  Serious: Yes (Other)
  Sender: FDA-Public Use
  Company Number: US-PFIZER INC-2007096354

PATIENT
  Sex: Male

DRUGS (1)
  1. LYRICA [Suspect]
     Indication: HEADACHE
     Route: 048
     Dates: start: 20070101, end: 20071105

REACTIONS (2)
  - BRONCHITIS [None]
  - SINUSITIS [None]
